FAERS Safety Report 8827132 (Version 2)
Quarter: 2013Q4

REPORT INFORMATION
  Report Type: Spontaneous
  Country: US (occurrence: US)
  Receive Date: 20121006
  Receipt Date: 20131204
  Transmission Date: 20140711
  Serious: Yes (Other)
  Sender: FDA-Public Use
  Company Number: US-US-EMD SERONO, INC.-232032K08USA

PATIENT
  Age: 68 Year
  Sex: Female
  Weight: 57 kg

DRUGS (6)
  1. REBIF [Suspect]
     Indication: MULTIPLE SCLEROSIS
     Route: 058
     Dates: start: 20060201, end: 20081126
  2. REBIF [Suspect]
     Route: 058
     Dates: start: 20090504
  3. TIZANIDINE [Concomitant]
     Indication: MULTIPLE SCLEROSIS
  4. CALCIUM [Concomitant]
     Indication: PRODUCT USED FOR UNKNOWN INDICATION
  5. GLUCOSAMINE WITH CHONDROITIN SULFATE [Concomitant]
     Indication: PRODUCT USED FOR UNKNOWN INDICATION
  6. ALEVE [Concomitant]
     Indication: PRODUCT USED FOR UNKNOWN INDICATION

REACTIONS (3)
  - Inflammatory carcinoma of the breast [Recovering/Resolving]
  - Metastases to liver [Unknown]
  - Metastases to spine [Unknown]
